FAERS Safety Report 9940945 (Version 2)
Quarter: 2014Q2

REPORT INFORMATION
  Report Type: Report from Study
  Country: US (occurrence: US)
  Receive Date: 20140303
  Receipt Date: 20140402
  Transmission Date: 20141212
  Serious: Yes (Other)
  Sender: FDA-Public Use
  Company Number: US-CELGENEUS-163-21880-14023301

PATIENT
  Age: 69 Year
  Sex: Male
  Weight: 78 kg

DRUGS (18)
  1. REVLIMID [Suspect]
     Indication: PLASMA CELL MYELOMA
     Dosage: 10 MILLIGRAM
     Route: 048
     Dates: start: 20120614
  2. REVLIMID [Suspect]
     Dosage: 15 MILLIGRAM
     Route: 048
     Dates: start: 201209
  3. REVLIMID [Suspect]
     Dosage: 10 MILLIGRAM
     Route: 048
     Dates: start: 20121001
  4. ACYCLOVIR [Concomitant]
     Indication: PRODUCT USED FOR UNKNOWN INDICATION
     Dosage: 1200 MILLIGRAM
     Route: 048
     Dates: start: 20110501
  5. ACYCLOVIR [Concomitant]
     Dosage: 1600 MILLIGRAM
     Route: 065
  6. AMLODIPINE [Concomitant]
     Indication: PRODUCT USED FOR UNKNOWN INDICATION
     Dosage: 5 MILLIGRAM
     Route: 048
     Dates: start: 20110501
  7. AMLODIPINE [Concomitant]
     Dosage: 5 MILLIGRAM
     Route: 048
     Dates: start: 20110501
  8. ASPIRIN [Concomitant]
     Indication: PRODUCT USED FOR UNKNOWN INDICATION
     Dosage: 325 MILLIGRAM
     Route: 048
     Dates: start: 20120220
  9. ASPIRIN [Concomitant]
     Dosage: 325 MILLIGRAM
     Route: 048
     Dates: start: 20120220
  10. MELPHALAN [Concomitant]
     Indication: PRODUCT USED FOR UNKNOWN INDICATION
     Route: 065
     Dates: start: 20111020
  11. MELPHALAN [Concomitant]
     Route: 065
     Dates: start: 20120209
  12. OXYCODONE [Concomitant]
     Indication: PAIN
     Route: 048
     Dates: start: 20110501
  13. PANTOPRAZOLE SODIUM [Concomitant]
     Indication: PRODUCT USED FOR UNKNOWN INDICATION
     Dosage: 40 MILLIGRAM
     Route: 065
  14. DIPHENOXYLATE-ATROPINE [Concomitant]
     Indication: DIARRHOEA
     Dosage: 2.5-0.025 MG
     Route: 065
  15. AREDIA [Concomitant]
     Indication: PRODUCT USED FOR UNKNOWN INDICATION
     Route: 065
  16. DEXAMETHASONE [Concomitant]
     Indication: RASH PRURITIC
     Dosage: 12 MILLIGRAM
     Route: 048
     Dates: start: 201209
  17. BENADRYL [Concomitant]
     Indication: RASH PRURITIC
     Route: 048
     Dates: start: 201209
  18. PEPCID [Concomitant]
     Indication: RASH PRURITIC
     Route: 048
     Dates: start: 201209

REACTIONS (3)
  - Malignant melanoma [Recovered/Resolved]
  - Squamous cell carcinoma of skin [Recovered/Resolved]
  - Squamous cell carcinoma of skin [Not Recovered/Not Resolved]
